FAERS Safety Report 11152917 (Version 1)
Quarter: 2015Q2

REPORT INFORMATION
  Report Type: Other
  Country: GB (occurrence: GB)
  Receive Date: 20150601
  Receipt Date: 20150601
  Transmission Date: 20150821
  Serious: Yes (Other)
  Sender: FDA-Public Use
  Company Number: GB-PERRIGO-15GB004804

PATIENT
  Age: 61 Year
  Sex: Male

DRUGS (1)
  1. LORATADINE 16028/0081 10 MG [Suspect]
     Active Substance: LORATADINE
     Indication: RHINITIS ALLERGIC
     Dosage: UNK
     Route: 048
     Dates: start: 20150413, end: 20150418

REACTIONS (4)
  - Fatigue [Unknown]
  - Head discomfort [Unknown]
  - Listless [Unknown]
  - Swelling face [Recovering/Resolving]

NARRATIVE: CASE EVENT DATE: 20150419
